FAERS Safety Report 11649673 (Version 3)
Quarter: 2015Q4

REPORT INFORMATION
  Report Type: Spontaneous
  Country: JP (occurrence: JP)
  Receive Date: 20151021
  Receipt Date: 20151215
  Transmission Date: 20160304
  Serious: Yes (Hospitalization, Other)
  Sender: FDA-Public Use
  Company Number: JP-ELI_LILLY_AND_COMPANY-JP201510004397

PATIENT
  Age: 77 Year
  Sex: Male
  Weight: 61.7 kg

DRUGS (4)
  1. CYRAMZA [Suspect]
     Active Substance: RAMUCIRUMAB
     Indication: ADENOCARCINOMA GASTRIC
     Dosage: 500 MG, OTHER
     Route: 042
     Dates: start: 20150925
  2. PACLITAXEL. [Suspect]
     Active Substance: PACLITAXEL
     Indication: ADENOCARCINOMA GASTRIC
     Dosage: 130 MG, OTHER
     Route: 042
     Dates: start: 20150925, end: 20151002
  3. ALOXI [Concomitant]
     Active Substance: PALONOSETRON HYDROCHLORIDE
     Indication: PREMEDICATION
     Dosage: 0.75 MG, UNK
     Dates: start: 20150925, end: 20151002
  4. DECADRON [Concomitant]
     Active Substance: DEXAMETHASONE
     Indication: PREMEDICATION
     Dosage: 13.2 MG, UNK
     Dates: start: 20150925, end: 20151002

REACTIONS (3)
  - Interstitial lung disease [Recovered/Resolved]
  - Anaphylactic reaction [Unknown]
  - Neutrophil count decreased [Recovered/Resolved]

NARRATIVE: CASE EVENT DATE: 20151002
